FAERS Safety Report 8010871-8 (Version None)
Quarter: 2011Q4

REPORT INFORMATION
  Report Type: 
  Country: None (occurrence: None)
  Receive Date: 20111222
  Receipt Date: 20111206
  Transmission Date: 20120403
  Serious: Yes (Other)
  Sender: FDA-Public Use
  Company Number: AUR-APL-2011-04290

PATIENT
  Age: 61 Year
  Sex: Female

DRUGS (16)
  1. DANDELION (TARAXCUM OFFICINALE) [Concomitant]
  2. MEBEVERINE (MEBEVERINE) [Concomitant]
  3. INDAPAMIDE (INDAPAMDE) [Concomitant]
  4. BISOPROLOL FUMARATE [Suspect]
     Indication: PRODUCT USED FOR UNKNOWN INDICATION
     Dates: start: 20101001, end: 20101006
  5. LOSARTAN POTASSIUM [Concomitant]
  6. SIMVASTATIN [Concomitant]
  7. RAMIPRIL [Suspect]
     Indication: BLOOD PRESSURE
     Dosage: (2.5 MG,1 D) ; (0.75 MG,1 D)
     Dates: start: 20101206, end: 20101216
  8. RAMIPRIL [Suspect]
     Indication: BLOOD PRESSURE
     Dosage: (2.5 MG,1 D) ; (0.75 MG,1 D)
     Dates: start: 20101118
  9. DILTIAZEM [Suspect]
     Indication: PRODUCT USED FOR UNKNOWN INDICATION
     Dosage: (200 MG),ORAL
     Route: 048
     Dates: start: 20110106
  10. DILTIAZEM [Suspect]
     Indication: PRODUCT USED FOR UNKNOWN INDICATION
     Dosage: (200 MG),ORAL
     Route: 048
     Dates: end: 20101006
  11. BENDROFLUMETHIAZIDE (BENDROFLUMETHIAZIDE) [Concomitant]
  12. SOTALOL HCL [Concomitant]
  13. ASPIRIN [Concomitant]
  14. CHAPARRAL DANDELION BLEND (CHAPARRAL DANDELION BLEND) [Concomitant]
  15. DILTIAZEM HYDROCHLORIDE [Suspect]
     Indication: PRODUCT USED FOR UNKNOWN INDICATION
     Dosage: (200 MG,1 D),ORAL
     Route: 048
     Dates: start: 20101006, end: 20101104
  16. HERBAL MEDICATION (HERBALIFE PRODUCTS) [Concomitant]

REACTIONS (12)
  - HYPOAESTHESIA [None]
  - VERTIGO [None]
  - MIGRAINE [None]
  - VISION BLURRED [None]
  - DIZZINESS [None]
  - NAUSEA [None]
  - FACIAL PAIN [None]
  - AURA [None]
  - VISUAL IMPAIRMENT [None]
  - HAEMATOMA [None]
  - DRUG HYPERSENSITIVITY [None]
  - FEELING ABNORMAL [None]
